FAERS Safety Report 5620158-6 (Version None)
Quarter: 2008Q1

REPORT INFORMATION
  Report Type: 
  Country: None (occurrence: None)
  Receive Date: 20080208
  Receipt Date: 20080205
  Transmission Date: 20080703
  Serious: Yes (Death, Hospitalization, Disabling)
  Sender: FDA-Public Use
  Company Number: JP-AVENTIS-200711688JP

PATIENT
  Age: 44 Year
  Sex: Male
  Weight: 54.4 kg

DRUGS (4)
  1. TAXOTERE [Suspect]
     Indication: GASTRIC CANCER
     Route: 041
     Dates: start: 20070605, end: 20070605
  2. TS-1 [Concomitant]
     Indication: GASTRIC CANCER
     Dosage: DOSE: 120 MG/BODY
     Route: 048
     Dates: start: 20070605, end: 20070608
  3. CISPLATIN [Concomitant]
     Indication: GASTRIC CANCER
     Dates: start: 20070222, end: 20070519
  4. CPT-11 [Concomitant]
     Indication: GASTRIC CANCER
     Dates: start: 20070222, end: 20070516

REACTIONS (1)
  - PULMONARY EMBOLISM [None]
